FAERS Safety Report 14339799 (Version 1)
Quarter: 2017Q4

REPORT INFORMATION
  Report Type: Spontaneous
  Country: CZ (occurrence: CZ)
  Receive Date: 20171230
  Receipt Date: 20171230
  Transmission Date: 20180321
  Serious: Yes (Other)
  Sender: FDA-Public Use
  Company Number: CZ-MYLANLABS-2017M1082854

PATIENT
  Age: 51 Year
  Sex: Female

DRUGS (3)
  1. DOXYHEXAL /00055701/ [Suspect]
     Active Substance: DOXYCYCLINE
     Indication: PRODUCT USED FOR UNKNOWN INDICATION
  2. MAXI-KALZ /00751520/ [Concomitant]
     Active Substance: CALCIUM CITRATE
     Indication: PRODUCT USED FOR UNKNOWN INDICATION
     Dosage: 1000 MG, BID
  3. DESLORATADIN MYLAN 5 MG POTAHOVAN? TABLETY [Suspect]
     Active Substance: DESLORATADINE
     Indication: HYPERSENSITIVITY
     Dosage: 5 MG, BID

REACTIONS (5)
  - Rash [Unknown]
  - Lip swelling [Unknown]
  - Headache [Unknown]
  - Eye oedema [Unknown]
  - Dry mouth [Unknown]
